FAERS Safety Report 18066190 (Version 2)
Quarter: 2020Q3

REPORT INFORMATION
  Report Type: Spontaneous
  Country: US (occurrence: US)
  Receive Date: 20200724
  Receipt Date: 20200914
  Transmission Date: 20201103
  Serious: Yes (Other)
  Sender: FDA-Public Use
  Company Number: US-SA-2020SA186967

PATIENT

DRUGS (5)
  1. LANTUS [Suspect]
     Active Substance: INSULIN GLARGINE
     Indication: TYPE 2 DIABETES MELLITUS
     Dosage: 47 TO 50 IU, BEDTIME
     Route: 065
  2. ADMELOG [Concomitant]
     Active Substance: INSULIN LISPRO
     Dosage: 12 IU, QD (IN THE MIDDLE OF THE AFTERNOON )
     Dates: start: 20200716, end: 20200716
  3. TRAMADOL. [Concomitant]
     Active Substance: TRAMADOL
     Dosage: UNK
  4. ADMELOG [Concomitant]
     Active Substance: INSULIN LISPRO
     Dosage: 12 IU AFTER EVERY MEAL
  5. LANTUS [Suspect]
     Active Substance: INSULIN GLARGINE
     Dosage: 47 IU, BED TIME
     Route: 065
     Dates: start: 20200716, end: 20200716

REACTIONS (7)
  - Tremor [Recovered/Resolved]
  - Blood glucose increased [Unknown]
  - Angina pectoris [Recovered/Resolved]
  - Product quality issue [Unknown]
  - Nausea [Recovered/Resolved]
  - Injection site pain [Recovered/Resolved]
  - Coronary artery bypass [Unknown]

NARRATIVE: CASE EVENT DATE: 20190920
